FAERS Safety Report 21403581 (Version 1)
Quarter: 2022Q4

REPORT INFORMATION
  Report Type: Spontaneous
  Country: US (occurrence: None)
  Receive Date: 20221002
  Receipt Date: 20221002
  Transmission Date: 20230113
  Serious: Yes (Disabling)
  Sender: FDA-Public Use
  Company Number: None

PATIENT
  Age: 70 Year
  Sex: Female
  Weight: 58.5 kg

DRUGS (10)
  1. MIRTAZAPINE [Suspect]
     Active Substance: MIRTAZAPINE
     Indication: Depression
     Dosage: OTHER QUANTITY : 1 TABLET(S);?FREQUENCY : AT BEDTIME;?
     Route: 048
  2. MIRTAZAPINE [Suspect]
     Active Substance: MIRTAZAPINE
     Indication: Insomnia
  3. MIRTAZAPINE [Suspect]
     Active Substance: MIRTAZAPINE
     Indication: Weight decreased
  4. VITAMIN D3 [Concomitant]
     Active Substance: CHOLECALCIFEROL
  5. VITAMIN K [Concomitant]
     Active Substance: PHYTONADIONE
  6. VITAMIN C [Concomitant]
     Active Substance: ASCORBIC ACID
  7. MAGNESIUM CITRATE [Concomitant]
     Active Substance: MAGNESIUM CITRATE
  8. FISH OIL [Concomitant]
     Active Substance: FISH OIL
  9. VITAMIN B12 [Concomitant]
     Active Substance: CYANOCOBALAMIN
  10. PROBIOTICS NOS [Concomitant]
     Active Substance: PROBIOTICS NOS

REACTIONS (29)
  - Sedation [None]
  - Insomnia [None]
  - Energy increased [None]
  - Feeling abnormal [None]
  - Dizziness [None]
  - Vision blurred [None]
  - Dry eye [None]
  - Nasal dryness [None]
  - Dry mouth [None]
  - Lip dry [None]
  - Nausea [None]
  - Derealisation [None]
  - Arthralgia [None]
  - Disturbance in attention [None]
  - Hypotension [None]
  - Constipation [None]
  - Diarrhoea [None]
  - Restless legs syndrome [None]
  - Tinnitus [None]
  - Sensation of foreign body [None]
  - Tremor [None]
  - Palpitations [None]
  - Suicidal ideation [None]
  - Vomiting [None]
  - Anxiety [None]
  - Electric shock sensation [None]
  - Withdrawal syndrome [None]
  - Paradoxical drug reaction [None]
  - Agitation [None]

NARRATIVE: CASE EVENT DATE: 20210101
